FAERS Safety Report 25041920 (Version 1)
Quarter: 2025Q1

REPORT INFORMATION
  Report Type: Spontaneous
  Country: GB (occurrence: None)
  Receive Date: 20250303
  Receipt Date: 20250303
  Transmission Date: 20250409
  Serious: No
  Sender: FDA-CTU
  Company Number: None

PATIENT
  Age: 26 Year
  Sex: Female
  Weight: 33.43 kg

DRUGS (1)
  1. MIRENA [Suspect]
     Active Substance: LEVONORGESTREL

REACTIONS (4)
  - Heavy menstrual bleeding [None]
  - Unexpected vaginal bleeding on hormonal IUD [None]
  - Pigmentation disorder [None]
  - Weight increased [None]

NARRATIVE: CASE EVENT DATE: 20241221
